FAERS Safety Report 19038107 (Version 4)
Quarter: 2022Q4

REPORT INFORMATION
  Report Type: Spontaneous
  Country: US (occurrence: US)
  Receive Date: 20210322
  Receipt Date: 20221109
  Transmission Date: 20230112
  Serious: No
  Sender: FDA-Public Use
  Company Number: US-PFIZER INC-2021273283

PATIENT
  Age: 78 Year
  Sex: Female

DRUGS (1)
  1. XELJANZ [Suspect]
     Active Substance: TOFACITINIB CITRATE
     Dosage: 5 MG

REACTIONS (6)
  - Blood cholesterol abnormal [Unknown]
  - Memory impairment [Unknown]
  - Malaise [Unknown]
  - Product dose omission issue [Unknown]
  - Paranasal sinus hypersecretion [Unknown]
  - Oropharyngeal discomfort [Unknown]
